FAERS Safety Report 10233573 (Version 2)
Quarter: 2017Q1

REPORT INFORMATION
  Report Type: Report from Study
  Country: US (occurrence: US)
  Receive Date: 20140612
  Receipt Date: 20170220
  Transmission Date: 20170428
  Serious: Yes (Death, Other)
  Sender: FDA-Public Use
  Company Number: US-BRISTOL-MYERS SQUIBB COMPANY-20952602

PATIENT
  Age: 80 Year
  Sex: Female

DRUGS (3)
  1. PREDNISONE. [Suspect]
     Active Substance: PREDNISONE
     Indication: RENAL TRANSPLANT
     Route: 065
  2. CELLCEPT [Suspect]
     Active Substance: MYCOPHENOLATE MOFETIL\MYCOPHENOLATE MOFETIL HYDROCHLORIDE
     Indication: RENAL TRANSPLANT
     Route: 065
  3. BELATACEPT [Suspect]
     Active Substance: BELATACEPT
     Indication: RENAL TRANSPLANT
     Dosage: LAST DOSE:21-FEB-2014
     Route: 065
     Dates: start: 20121228

REACTIONS (6)
  - Failure to thrive [Fatal]
  - Malnutrition [Unknown]
  - Weight decreased [Unknown]
  - Decreased appetite [Unknown]
  - Generalised oedema [Unknown]
  - Jejunostomy [Unknown]

NARRATIVE: CASE EVENT DATE: 20140106
